FAERS Safety Report 20553018 (Version 1)
Quarter: 2022Q1

REPORT INFORMATION
  Report Type: Other
  Country: IT (occurrence: None)
  Receive Date: 20220304
  Receipt Date: 20220304
  Transmission Date: 20220423
  Serious: Yes (Other)
  Sender: FDA-Public Use
  Company Number: IT-ROCHE-3037465

PATIENT
  Sex: Male

DRUGS (1)
  1. VEMURAFENIB [Suspect]
     Active Substance: VEMURAFENIB
     Indication: Erdheim-Chester disease
     Route: 065

REACTIONS (1)
  - Myocarditis [Recovered/Resolved]
